FAERS Safety Report 6346748-3 (Version None)
Quarter: 2009Q3

REPORT INFORMATION
  Report Type: 
  Country: None (occurrence: None)
  Receive Date: 20090904
  Receipt Date: 20090827
  Transmission Date: 20100115
  Serious: Yes (Other)
  Sender: FDA-Public Use
  Company Number: POMP-1000643

PATIENT
  Age: 28 Year
  Sex: Female
  Weight: 49 kg

DRUGS (1)
  1. MYOZYME [Suspect]
     Indication: GLYCOGEN STORAGE DISEASE TYPE II
     Dosage: 20 G/KG, Q2W, INTRAVENOUS
     Route: 042
     Dates: start: 20090622

REACTIONS (6)
  - DYSSTASIA [None]
  - EAR INFECTION [None]
  - GAIT DISTURBANCE [None]
  - HEADACHE [None]
  - MUSCLE DISORDER [None]
  - VERTIGO [None]
